FAERS Safety Report 19982182 (Version 2)
Quarter: 2025Q4

REPORT INFORMATION
  Report Type: Report from Study
  Country: US (occurrence: US)
  Receive Date: 20211022
  Receipt Date: 20251024
  Transmission Date: 20260118
  Serious: Yes (Other)
  Sender: QILU ANTIBIOTICS PHARMACEUTICAL
  Company Number: None

PATIENT
  Age: 81 Year

DRUGS (1)
  1. CEFEPIME HYDROCHLORIDE [Suspect]
     Active Substance: CEFEPIME HYDROCHLORIDE
     Indication: Pneumonia
     Dosage: 1 GRAM
     Route: 065

REACTIONS (1)
  - Status epilepticus [Unknown]
